FAERS Safety Report 4290611-9 (Version None)
Quarter: 2004Q1

REPORT INFORMATION
  Report Type: 
  Country: None (occurrence: None)
  Receive Date: 20040209
  Receipt Date: 20040203
  Transmission Date: 20041129
  Serious: Yes (Other)
  Sender: FDA-Public Use
  Company Number: 2003UW12941

PATIENT
  Age: 3 Year
  Sex: Female
  Weight: 15.4223 kg

DRUGS (3)
  1. PULMICORT RESPULES [Suspect]
     Indication: ASTHMA
  2. ALBUTEROL [Suspect]
     Indication: ASTHMA
  3. POLYTUSSIN [Suspect]
     Indication: ASTHMA

REACTIONS (4)
  - CONVULSION [None]
  - EYE ROLLING [None]
  - TREMOR [None]
  - URINARY INCONTINENCE [None]
